FAERS Safety Report 11771202 (Version 3)
Quarter: 2016Q2

REPORT INFORMATION
  Report Type: Spontaneous
  Country: US (occurrence: US)
  Receive Date: 20151124
  Receipt Date: 20160609
  Transmission Date: 20160815
  Serious: Yes (Other)
  Sender: FDA-Public Use
  Company Number: US-HOSPIRA-3089340

PATIENT
  Age: 64 Year
  Sex: Male

DRUGS (2)
  1. CILASTATIN/IMIPENEM [Suspect]
     Active Substance: CILASTATIN SODIUM\IMIPENEM
     Dosage: INCREASED DOSE
  2. CILASTATIN/IMIPENEM [Suspect]
     Active Substance: CILASTATIN SODIUM\IMIPENEM
     Indication: URINARY TRACT INFECTION BACTERIAL
     Dosage: UNK

REACTIONS (6)
  - Psychotic disorder [None]
  - Delusion [None]
  - Abnormal behaviour [None]
  - Hallucination [None]
  - Substance-induced psychotic disorder [Recovered/Resolved]
  - Disorganised speech [None]
